FAERS Safety Report 5711225-7 (Version None)
Quarter: 2008Q2

REPORT INFORMATION
  Report Type: 
  Country: None (occurrence: None)
  Receive Date: 20080421
  Receipt Date: 20080415
  Transmission Date: 20081010
  Serious: No
  Sender: FDA-Public Use
  Company Number: US-ASTRAZENECA-2008UW02542

PATIENT
  Age: 465 Day
  Sex: Female
  Weight: 9.5 kg

DRUGS (2)
  1. PULMICORT RESPULES [Suspect]
     Indication: WHEEZING
     Route: 055
     Dates: start: 20080204, end: 20080205
  2. ALBUTEROL [Concomitant]
     Indication: WHEEZING

REACTIONS (2)
  - CONVERSION DISORDER [None]
  - HEART RATE INCREASED [None]
